FAERS Safety Report 22393160 (Version 1)
Quarter: 2023Q2

REPORT INFORMATION
  Report Type: Report from Study
  Country: US (occurrence: US)
  Receive Date: 20230601
  Receipt Date: 20230601
  Transmission Date: 20230722
  Serious: Yes (Other)
  Sender: FDA-Public Use
  Company Number: US-ACADIA PHARMACEUTICALS INC.-ACA-2023-PIM-002008

PATIENT
  Age: 72 Year
  Sex: Male

DRUGS (17)
  1. NUPLAZID [Suspect]
     Active Substance: PIMAVANSERIN TARTRATE
     Indication: Parkinson^s disease
     Dosage: 20 MILLIGRAM, QD AT NIGHT
     Route: 048
     Dates: start: 202301
  2. TAMSULOSIN [Concomitant]
     Active Substance: TAMSULOSIN
  3. CARBIDOPA [Concomitant]
     Active Substance: CARBIDOPA
  4. VITAMIN C [Concomitant]
     Active Substance: ASCORBIC ACID
  5. MIRALAX [Concomitant]
     Active Substance: POLYETHYLENE GLYCOL 3350
  6. VITAMIN E [Concomitant]
     Active Substance: .ALPHA.-TOCOPHEROL
  7. ESCITALOPRAM [Concomitant]
     Active Substance: ESCITALOPRAM OXALATE
  8. CYANOCOBALAMIN [Concomitant]
     Active Substance: CYANOCOBALAMIN
  9. HERBALS\WITHANIA SOMNIFERA ROOT [Concomitant]
     Active Substance: HERBALS\WITHANIA SOMNIFERA ROOT
  10. FINASTERIDE [Concomitant]
     Active Substance: FINASTERIDE
  11. VITAMIN D NOS [Concomitant]
     Active Substance: VITAMIN D NOS
  12. CALCIUM [Concomitant]
     Active Substance: CALCIUM
  13. VITAMIN D3 [Concomitant]
     Active Substance: CHOLECALCIFEROL
  14. KELP [IODINE] [Concomitant]
  15. AMLA FRUIT [Concomitant]
  16. TRIPHALA [Concomitant]
  17. DIGESTIVE ENZYMES [ALPHA-D-GALACTOSIDASE;AMYLASE;BROMELAINS;CELLULASE; [Concomitant]

REACTIONS (6)
  - Seizure [Unknown]
  - Panic attack [Unknown]
  - Blood pressure decreased [Unknown]
  - Incorrect dose administered [Unknown]
  - Constipation [Unknown]
  - Confusional state [Unknown]

NARRATIVE: CASE EVENT DATE: 20230101
